FAERS Safety Report 19211997 (Version 1)
Quarter: 2021Q2

REPORT INFORMATION
  Report Type: Spontaneous
  Country: US (occurrence: US)
  Receive Date: 20210504
  Receipt Date: 20210504
  Transmission Date: 20210717
  Serious: Yes (Other)
  Sender: FDA-Public Use
  Company Number: US-MYLANLABS-2021M1025713

PATIENT
  Sex: Male
  Weight: 104 kg

DRUGS (1)
  1. MUSE [Suspect]
     Active Substance: ALPROSTADIL
     Indication: ERECTILE DYSFUNCTION
     Dosage: 500 MICROGRAM, PRN (AS NEEDED)
     Route: 066

REACTIONS (2)
  - Drug ineffective [Not Recovered/Not Resolved]
  - Product label confusion [Not Recovered/Not Resolved]
